FAERS Safety Report 9034178 (Version 1)
Quarter: 2013Q1

REPORT INFORMATION
  Report Type: Spontaneous
  Country: US (occurrence: None)
  Receive Date: 20130114
  Receipt Date: 20130114
  Transmission Date: 20140127
  Serious: Yes (Other)
  Sender: FDA-Public Use
  Company Number: KAD201301-000024

PATIENT
  Age: 42 Year
  Sex: 0

DRUGS (2)
  1. RIBAVIRIN (RIBAVIRIN) [Suspect]
     Indication: HEPATITIS C
  2. PEG-INTERFERON (PEG-INTERFERON) [Suspect]
     Indication: HEPATITIS C

REACTIONS (5)
  - Oesophageal tuberculosis [None]
  - Tuberculosis [None]
  - Dysphagia [None]
  - Odynophagia [None]
  - Neutropenia [None]
